FAERS Safety Report 8729807 (Version 3)
Quarter: 2012Q4

REPORT INFORMATION
  Report Type: Report from Study
  Country: JP (occurrence: JP)
  Receive Date: 20120817
  Receipt Date: 20120914
  Transmission Date: 20130627
  Serious: Yes (Hospitalization, Other)
  Sender: FDA-Public Use
  Company Number: JP-JNJFOC-20120805127

PATIENT
  Age: 80 Year
  Sex: Female

DRUGS (6)
  1. REMINYL [Suspect]
     Indication: DEMENTIA ALZHEIMER^S TYPE
     Dosage: dose increased
     Route: 048
     Dates: start: 20120306, end: 20120327
  2. REMINYL [Suspect]
     Indication: DEMENTIA ALZHEIMER^S TYPE
     Route: 048
     Dates: start: 20120207, end: 20120305
  3. AMLODIN [Concomitant]
     Indication: HYPERTENSION
     Route: 048
  4. MAGLAX [Concomitant]
     Indication: CONSTIPATION
     Route: 048
  5. BONALON [Concomitant]
     Indication: OSTEOPOROSIS
     Route: 048
  6. SEROQUEL [Concomitant]
     Indication: DELIRIUM
     Route: 048

REACTIONS (2)
  - Anger [Recovering/Resolving]
  - Delirium [Recovering/Resolving]
